FAERS Safety Report 5748788-1 (Version None)
Quarter: 2008Q2

REPORT INFORMATION
  Report Type: 
  Country: None (occurrence: None)
  Receive Date: 20080521
  Receipt Date: 20080512
  Transmission Date: 20081010
  Serious: Yes (Hospitalization)
  Sender: FDA-Public Use
  Company Number: 2006-00167

PATIENT
  Age: 50 Year
  Sex: Female

DRUGS (6)
  1. VELCADE [Suspect]
     Indication: MULTIPLE MYELOMA
     Dosage: 1.95 MG, INTRAVENOUS
     Route: 042
     Dates: start: 20051004, end: 20051230
  2. DEXAMETHASONE TAB [Suspect]
     Indication: MULTIPLE MYELOMA
     Dosage: 40.00 MG, ORAL
     Route: 048
     Dates: start: 20051004, end: 20051223
  3. LEXOMIL (BROMAZEPAM) [Concomitant]
  4. DI-ANTALVIC (PARACETAMOL, DEXTROPROPOXYPHENE HYDROCHLORIDE) [Concomitant]
  5. BACTRIM DS [Concomitant]
  6. DURAGESIC [Concomitant]

REACTIONS (21)
  - ARTHRALGIA [None]
  - BLOOD BICARBONATE DECREASED [None]
  - BLOOD PH DECREASED [None]
  - BLOOD PRESSURE INCREASED [None]
  - BREATH SOUNDS ABNORMAL [None]
  - BRONCHITIS [None]
  - CENTRAL-ALVEOLAR HYPOVENTILATION [None]
  - COMA [None]
  - DIAPHRAGMATIC DISORDER [None]
  - DIZZINESS [None]
  - HEADACHE [None]
  - HYPERCAPNIA [None]
  - OVERDOSE [None]
  - OXYGEN SATURATION DECREASED [None]
  - PAIN [None]
  - PRODUCTIVE COUGH [None]
  - RENAL FAILURE [None]
  - RESPIRATORY RATE INCREASED [None]
  - RHONCHI [None]
  - SHOCK [None]
  - SUPERINFECTION [None]
